FAERS Safety Report 10477303 (Version 1)
Quarter: 2014Q3

REPORT INFORMATION
  Report Type: Spontaneous
  Country: IN (occurrence: None)
  Receive Date: 20140923
  Receipt Date: 20140923
  Transmission Date: 20150326
  Serious: Yes (Other)
  Sender: FDA-Public Use
  Company Number: 2014-PEL-000285

PATIENT
  Age: 52 Year
  Sex: Female
  Weight: 61 kg

DRUGS (16)
  1. TRAMADOL [Concomitant]
     Active Substance: TRAMADOL
  2. PHENYTOIN. [Concomitant]
     Active Substance: PHENYTOIN
  3. NACL (SODIUM CHLORIDE) [Concomitant]
  4. ISOFLURANE. [Suspect]
     Active Substance: ISOFLURANE
     Indication: MAINTENANCE OF ANAESTHESIA
     Dosage: 1 A^ 1.5 VOI%
  5. ONDANSETRON [Concomitant]
     Active Substance: ONDANSETRON
  6. FENTANYL. [Concomitant]
     Active Substance: FENTANYL
  7. ATRACURIUM [Concomitant]
     Active Substance: ATRACURIUM
  8. DEXAMETHASONE. [Concomitant]
     Active Substance: DEXAMETHASONE
  9. OXYGEN. [Concomitant]
     Active Substance: OXYGEN
  10. NEOSTIGMINE [Concomitant]
     Active Substance: NEOSTIGMINE
  11. FENTANYL. [Concomitant]
     Active Substance: FENTANYL
  12. PARACETAMOL [Concomitant]
     Active Substance: ACETAMINOPHEN
  13. CRITIFOL [Suspect]
     Active Substance: PROPOFOL
     Indication: INDUCTION OF ANAESTHESIA
     Route: 042
  14. MANNITOL 20% A.N.B (MANNITOL) [Concomitant]
  15. CEFTRIAXONE. [Concomitant]
     Active Substance: CEFTRIAXONE
  16. GLYCOPYRROLATE /00196201/ (GLYCOPYRRONIUM) [Concomitant]

REACTIONS (3)
  - Ketosis [None]
  - Metabolic acidosis [None]
  - Hyperglycaemia [None]
